FAERS Safety Report 8221437-9 (Version None)
Quarter: 2012Q1

REPORT INFORMATION
  Report Type: 
  Country: None (occurrence: None)
  Receive Date: 20120320
  Receipt Date: 20120314
  Transmission Date: 20120608
  Serious: No
  Sender: FDA-Public Use
  Company Number: US-PFIZER INC-2012067863

PATIENT
  Sex: Male
  Weight: 83.9 kg

DRUGS (5)
  1. ZINC [Concomitant]
     Dosage: 15 MG, DAILY
  2. DILANTIN-125 [Suspect]
     Dosage: 230 MG, 2X/DAY
     Route: 048
     Dates: start: 20100703
  3. SELENIUM/TOCOPHEROL [Concomitant]
     Dosage: 400 IU/50MCG, 2X/DAY
  4. CALCIUM [Concomitant]
     Dosage: 120 MG, DAILY
  5. LECITHIN [Concomitant]
     Dosage: UNK, 2X/DAY

REACTIONS (8)
  - RASH [None]
  - DYSPNOEA [None]
  - DIZZINESS [None]
  - DYSPHAGIA [None]
  - PRESYNCOPE [None]
  - PYREXIA [None]
  - EYE PAIN [None]
  - FATIGUE [None]
